FAERS Safety Report 10192997 (Version 1)
Quarter: 2014Q2

REPORT INFORMATION
  Report Type: Report from Study
  Country: CL (occurrence: CL)
  Receive Date: 20140524
  Receipt Date: 20140524
  Transmission Date: 20141212
  Serious: Yes (Hospitalization)
  Sender: FDA-Public Use
  Company Number: PHHY2014CL063259

PATIENT
  Sex: Female

DRUGS (1)
  1. LEPONEX [Suspect]
     Dosage: UNK UKN, UNK

REACTIONS (2)
  - Pyelonephritis [Unknown]
  - Nephrolithiasis [Unknown]
